FAERS Safety Report 5739803-X (Version None)
Quarter: 2008Q2

REPORT INFORMATION
  Report Type: 
  Country: None (occurrence: None)
  Receive Date: 20080513
  Receipt Date: 20080513
  Transmission Date: 20081010
  Serious: Yes (Hospitalization)
  Sender: FDA-Public Use
  Company Number: None

PATIENT
  Age: 93 Year
  Sex: Male

DRUGS (3)
  1. NAPROXEN [Suspect]
     Indication: PAIN
     Dosage: BID PO
     Route: 048
  2. NAPROXEN [Suspect]
     Indication: SPINAL COMPRESSION FRACTURE
     Dosage: BID PO
     Route: 048
  3. ASPIRIN [Suspect]
     Dosage: 81MG DAILY PO
     Route: 048

REACTIONS (3)
  - GASTRIC ULCER HAEMORRHAGE [None]
  - HYPOTENSION [None]
  - MALLORY-WEISS SYNDROME [None]
